FAERS Safety Report 22685144 (Version 2)
Quarter: 2024Q1

REPORT INFORMATION
  Report Type: Report from Study
  Country: AU (occurrence: AU)
  Receive Date: 20230710
  Receipt Date: 20240214
  Transmission Date: 20240410
  Serious: Yes (Hospitalization)
  Sender: FDA-Public Use
  Company Number: AU-ABBVIE-5302172

PATIENT
  Sex: Male

DRUGS (2)
  1. CARBIDOPA\LEVODOPA [Suspect]
     Active Substance: CARBIDOPA\LEVODOPA
     Indication: Parkinson^s disease
     Dosage: 100ML GEL CASSETTE, M WAS 16.5, CD WAS 4.6 AND ED WAS 1. USING EXTRA DOSE AROUND 2 TO 4X DAY, DUO...
     Route: 050
     Dates: start: 20230614
  2. CARBIDOPA\LEVODOPA [Suspect]
     Active Substance: CARBIDOPA\LEVODOPA

REACTIONS (7)
  - Hospitalisation [Unknown]
  - Stoma site discharge [Unknown]
  - Tremor [Unknown]
  - Stoma site infection [Unknown]
  - Stoma site discharge [Recovered/Resolved]
  - Stoma site erythema [Unknown]
  - Stoma site inflammation [Unknown]

NARRATIVE: CASE EVENT DATE: 20230101
